FAERS Safety Report 12168641 (Version 1)
Quarter: 2016Q1

REPORT INFORMATION
  Report Type: Spontaneous
  Country: CH (occurrence: CH)
  Receive Date: 20160310
  Receipt Date: 20160310
  Transmission Date: 20160526
  Serious: Yes (Hospitalization)
  Sender: FDA-Public Use
  Company Number: CH-JNJFOC-20160307448

PATIENT
  Age: 81 Year
  Sex: Male

DRUGS (2)
  1. ACETYLSALICYLIC ACID [Suspect]
     Active Substance: ASPIRIN
     Indication: ANTIPLATELET THERAPY
     Route: 065
  2. RIVAROXABAN [Suspect]
     Active Substance: RIVAROXABAN
     Indication: CARDIAC VALVE REPLACEMENT COMPLICATION
     Route: 048

REACTIONS (3)
  - Off label use [Unknown]
  - Cardiac valve replacement complication [Recovered/Resolved]
  - Ischaemic stroke [Recovered/Resolved]
